FAERS Safety Report 8045349-9 (Version None)
Quarter: 2012Q1

REPORT INFORMATION
  Report Type: 
  Country: None (occurrence: None)
  Receive Date: 20120113
  Receipt Date: 20120110
  Transmission Date: 20120608
  Serious: Yes (Death, Hospitalization)
  Sender: FDA-Public Use
  Company Number: US-GILEAD-2011-0047560

PATIENT
  Age: 68 Year
  Sex: Female

DRUGS (2)
  1. REVATIO [Concomitant]
  2. LETAIRIS [Suspect]
     Indication: PULMONARY HYPERTENSION
     Dosage: 10 MG, UNK
     Route: 048
     Dates: start: 20090112, end: 20111214

REACTIONS (5)
  - SWELLING [None]
  - PULMONARY ARTERIAL HYPERTENSION [None]
  - INFECTION [None]
  - DISEASE PROGRESSION [None]
  - HYPOXIA [None]
